FAERS Safety Report 7698895-1 (Version None)
Quarter: 2011Q3

REPORT INFORMATION
  Report Type: 
  Country: None (occurrence: None)
  Receive Date: 20110819
  Receipt Date: 20110817
  Transmission Date: 20111222
  Serious: Yes (Death, Other)
  Sender: FDA-Public Use
  Company Number: PHEH2010US02625

PATIENT
  Sex: Male

DRUGS (13)
  1. CALCIUM CARBONATE [Concomitant]
  2. PREDNISONE [Concomitant]
  3. METFFORMIN HYDROCHLORIDE [Concomitant]
     Dosage: 500 MG, TID
     Route: 048
  4. MEGESTROL ACETATE [Concomitant]
  5. MULTI-VITAMINS [Concomitant]
  6. WARFARIN SODIUM [Concomitant]
  7. SPIRIVA [Suspect]
  8. ADVAIR DISKUS 100/50 [Suspect]
  9. FLOMAX [Concomitant]
  10. SENOKOT [Concomitant]
  11. DIURETICS [Concomitant]
  12. ZOMETA [Suspect]
     Dates: start: 20010101, end: 20070401
  13. BETA BLOCKING AGENTS [Concomitant]

REACTIONS (48)
  - INJURY [None]
  - ANHEDONIA [None]
  - CAROTID ARTERY DISEASE [None]
  - OEDEMA PERIPHERAL [None]
  - MALAISE [None]
  - FATIGUE [None]
  - PAIN IN JAW [None]
  - PLEURAL EFFUSION [None]
  - RED BLOOD CELL COUNT DECREASED [None]
  - DEATH [None]
  - METASTASES TO SPINE [None]
  - METASTASES TO BONE [None]
  - RHEUMATOID ARTHRITIS [None]
  - NECK PAIN [None]
  - NOCTURIA [None]
  - DYSURIA [None]
  - BACK PAIN [None]
  - HAEMATURIA [None]
  - HERPES VIRUS INFECTION [None]
  - NEOPLASM MALIGNANT [None]
  - BREAST MASS [None]
  - HEPATIC STEATOSIS [None]
  - GOUT [None]
  - ANXIETY [None]
  - METASTASES TO SPLEEN [None]
  - DYSPNOEA [None]
  - DEEP VEIN THROMBOSIS [None]
  - HYPERTENSION [None]
  - VISION BLURRED [None]
  - HOT FLUSH [None]
  - LYMPHADENOPATHY [None]
  - HYPERLIPIDAEMIA [None]
  - HAEMATOMA [None]
  - ERYTHEMA [None]
  - TOOTHACHE [None]
  - EMPHYSEMA [None]
  - CARPAL TUNNEL SYNDROME [None]
  - MACULAR DEGENERATION [None]
  - SQUAMOUS CELL CARCINOMA [None]
  - OSTEONECROSIS OF JAW [None]
  - PAIN [None]
  - BREAST CANCER RECURRENT [None]
  - METASTASES TO LIVER [None]
  - CHRONIC OBSTRUCTIVE PULMONARY DISEASE [None]
  - DEAFNESS NEUROSENSORY [None]
  - TYPE 2 DIABETES MELLITUS [None]
  - ADRENAL MASS [None]
  - HAEMOGLOBIN DECREASED [None]
